FAERS Safety Report 6266876-0 (Version None)
Quarter: 2009Q3

REPORT INFORMATION
  Report Type: 
  Country: None (occurrence: None)
  Receive Date: 20090710
  Receipt Date: 20090710
  Transmission Date: 20100115
  Serious: Yes (Hospitalization)
  Sender: FDA-Public Use
  Company Number: None

PATIENT
  Sex: Male
  Weight: 88.64 kg

DRUGS (13)
  1. CYCLOPHOSPHAMIDE [Suspect]
     Dosage: 2496 MG
  2. PENTOSTATIN [Suspect]
     Dosage: 16.64 MG
  3. RITUXIMAB (MOAB C2B8 ANTI CD20, CHIMERIC) [Suspect]
     Dosage: 3349 MG
  4. ALLOPURINOL [Concomitant]
  5. BACTRIM [Concomitant]
  6. CARDIZEM [Concomitant]
  7. COUMADIN [Concomitant]
  8. FLOMAX [Concomitant]
  9. FOLIC ACID [Concomitant]
  10. LASIX [Concomitant]
  11. METFORMIN HCL [Concomitant]
  12. SYNTHROID [Concomitant]
  13. VALTREX [Concomitant]

REACTIONS (6)
  - CHILLS [None]
  - CLOSTRIDIAL INFECTION [None]
  - DIARRHOEA [None]
  - LETHARGY [None]
  - NAUSEA [None]
  - VOMITING [None]
